FAERS Safety Report 9463612 (Version 2)
Quarter: 2013Q4

REPORT INFORMATION
  Report Type: Spontaneous
  Country: JP (occurrence: JP)
  Receive Date: 20130819
  Receipt Date: 20131018
  Transmission Date: 20140711
  Serious: Yes (Death, Disabling)
  Sender: FDA-Public Use
  Company Number: JP-ROCHE-1261188

PATIENT
  Age: 77 Year
  Sex: Male
  Weight: 57 kg

DRUGS (7)
  1. XELODA [Suspect]
     Indication: METASTATIC GASTRIC CANCER
     Dosage: IT IS ONE ADMINISTERING WEEKLY HOLIDAY MEDICINE FOR TWO WEEKS.
     Route: 048
     Dates: start: 20130614, end: 20130716
  2. BRIPLATIN [Concomitant]
     Indication: METASTATIC GASTRIC CANCER
     Dosage: DOSAGE IS UNCERTAIN.
     Route: 041
     Dates: start: 20130705, end: 20130705
  3. DEPAS [Concomitant]
     Route: 050
     Dates: end: 20130716
  4. TAKEPRON [Concomitant]
     Route: 050
     Dates: end: 20130716
  5. HALCION [Concomitant]
     Route: 050
     Dates: end: 20130716
  6. ENSURE LIQUID [Concomitant]
     Route: 050
     Dates: end: 20130716
  7. MAGLAX [Concomitant]
     Route: 050
     Dates: end: 20130716

REACTIONS (6)
  - Pneumonia [Fatal]
  - Acute respiratory failure [Fatal]
  - Circulatory collapse [Fatal]
  - Diarrhoea [Recovering/Resolving]
  - Neutropenia [Not Recovered/Not Resolved]
  - Constipation [Unknown]
